FAERS Safety Report 9203915 (Version 2)
Quarter: 2013Q2

REPORT INFORMATION
  Report Type: Report from Study
  Country: DE (occurrence: DE)
  Receive Date: 20130402
  Receipt Date: 20130502
  Transmission Date: 20140414
  Serious: Yes (Hospitalization)
  Sender: FDA-Public Use
  Company Number: DE-UCBSA-081604

PATIENT
  Sex: Female

DRUGS (5)
  1. VIMPAT [Suspect]
     Indication: EPILEPSY
     Dosage: TOTAL DAILY DOSE: 50 MG
     Dates: start: 20101106
  2. VIMPAT [Suspect]
     Indication: EPILEPSY
     Dosage: TOTAL DAILY DOSE: 300 MG
  3. OXCARBAZEPINE [Concomitant]
     Indication: EPILEPSY
     Dosage: TOTAL DAILY DOSE: 2100 MG
  4. OXCARBAZEPINE [Concomitant]
     Indication: EPILEPSY
     Dosage: TOTAL DAILY DOSE: 1650 MG
  5. VALPROATE [Concomitant]
     Indication: EPILEPSY
     Dosage: TOTAL DAILY DOSE: 900 MG

REACTIONS (1)
  - Grand mal convulsion [Unknown]
